FAERS Safety Report 7087350-8 (Version None)
Quarter: 2010Q4

REPORT INFORMATION
  Report Type: 
  Country: None (occurrence: None)
  Receive Date: 20101108
  Receipt Date: 20101101
  Transmission Date: 20110411
  Serious: Yes (Other)
  Sender: FDA-Public Use
  Company Number: 2007BI019630

PATIENT
  Age: 29 Year
  Sex: Female

DRUGS (3)
  1. AVONEX [Suspect]
     Indication: MULTIPLE SCLEROSIS
     Route: 030
     Dates: start: 20041001, end: 20050301
  2. AVONEX [Suspect]
     Route: 030
     Dates: start: 20060101, end: 20080101
  3. AVONEX [Suspect]
     Route: 030

REACTIONS (2)
  - BACTERIAL TOXAEMIA [None]
  - HYPERTENSION [None]
